FAERS Safety Report 7648228-1 (Version None)
Quarter: 2011Q3

REPORT INFORMATION
  Report Type: 
  Country: None (occurrence: None)
  Receive Date: 20110801
  Receipt Date: 20110727
  Transmission Date: 20111222
  Serious: No
  Sender: FDA-Public Use
  Company Number: US-PFIZER INC-2011171783

PATIENT
  Sex: Female
  Weight: 66.2 kg

DRUGS (1)
  1. LYRICA [Suspect]
     Indication: PAIN
     Dosage: 75 MG, 2X/DAY
     Route: 048
     Dates: start: 20110724, end: 20110727

REACTIONS (6)
  - VISION BLURRED [None]
  - ASTHENIA [None]
  - FEELING ABNORMAL [None]
  - DIZZINESS [None]
  - HYPERSOMNIA [None]
  - MEMORY IMPAIRMENT [None]
